FAERS Safety Report 9039485 (Version 1)
Quarter: 2013Q1

REPORT INFORMATION
  Report Type: Spontaneous
  Country: US (occurrence: None)
  Receive Date: 20130123
  Receipt Date: 20130123
  Transmission Date: 20140127
  Serious: No
  Sender: FDA-Public Use
  Company Number: None

PATIENT
  Sex: Female

DRUGS (1)
  1. LETROZOLE 2.5 MG SUN PHARMACEUTICALS [Suspect]
     Dosage: 2.5 MG  QD  PO?
     Route: 048

REACTIONS (1)
  - Hepatic enzyme increased [None]
